FAERS Safety Report 12689235 (Version 1)
Quarter: 2016Q3

REPORT INFORMATION
  Report Type: Spontaneous
  Country: JP (occurrence: JP)
  Receive Date: 20160826
  Receipt Date: 20160826
  Transmission Date: 20161109
  Serious: Yes (Hospitalization, Other)
  Sender: FDA-Public Use
  Company Number: JP-BAYER-2016-162713

PATIENT
  Age: 59 Year
  Sex: Female

DRUGS (4)
  1. NAFAMOSTAT MESILATE [Concomitant]
     Active Substance: NAFAMOSTAT MESYLATE
     Indication: ANTICOAGULANT THERAPY
  2. HEPARIN [Interacting]
     Active Substance: HEPARIN SODIUM
     Indication: ANTICOAGULANT THERAPY
     Dosage: 1000 IU, UNK
  3. HEPARIN [Interacting]
     Active Substance: HEPARIN SODIUM
     Indication: ANTICOAGULANT THERAPY
     Dosage: 500 IU PER HOUR, UNK (MAINTAINENCE DOSE)
  4. ACETYLSALICYLIC ACID({=100 MG) [Suspect]
     Active Substance: ASPIRIN
     Indication: THROMBOSIS PROPHYLAXIS
     Dosage: UNK
     Route: 048

REACTIONS (5)
  - Cerebral haemorrhage [Recovered/Resolved]
  - Arachnoid cyst [Recovered/Resolved]
  - Drug administration error [None]
  - Subdural hygroma [Recovered/Resolved]
  - Labelled drug-drug interaction medication error [None]
